FAERS Safety Report 4895033-5 (Version None)
Quarter: 2006Q1

REPORT INFORMATION
  Report Type: 
  Country: None (occurrence: None)
  Receive Date: 20060130
  Receipt Date: 20051104
  Transmission Date: 20060701
  Serious: Yes (Other)
  Sender: FDA-Public Use
  Company Number: US-BRISTOL-MYERS SQUIBB COMPANY-13168794

PATIENT
  Sex: Male

DRUGS (2)
  1. GLUCOPHAGE [Suspect]
  2. LANTUS [Suspect]
     Dosage: DOSAGE FORM = UNITS
     Route: 058

REACTIONS (1)
  - HYPERGLYCAEMIA [None]
